FAERS Safety Report 13079225 (Version 1)
Quarter: 2017Q1

REPORT INFORMATION
  Report Type: Spontaneous
  Country: US (occurrence: US)
  Receive Date: 20170103
  Receipt Date: 20170103
  Transmission Date: 20170428
  Serious: No
  Sender: FDA-Public Use
  Company Number: US-JNJFOC-20161222024

PATIENT
  Age: 13 Year
  Sex: Male
  Weight: 49.9 kg

DRUGS (3)
  1. ZYRTEC [Suspect]
     Active Substance: CETIRIZINE HYDROCHLORIDE
     Indication: LACRIMATION INCREASED
     Dosage: ONCE AT NIGHT
     Route: 048
     Dates: start: 20161117, end: 20161117
  2. ZYRTEC [Suspect]
     Active Substance: CETIRIZINE HYDROCHLORIDE
     Indication: HYPERSENSITIVITY
     Dosage: ONCE AT NIGHT
     Route: 048
     Dates: start: 20161117, end: 20161117
  3. ZYRTEC [Suspect]
     Active Substance: CETIRIZINE HYDROCHLORIDE
     Indication: NASAL CONGESTION
     Dosage: ONCE AT NIGHT
     Route: 048
     Dates: start: 20161117, end: 20161117

REACTIONS (2)
  - Product use issue [Recovered/Resolved]
  - Depression [Recovered/Resolved]

NARRATIVE: CASE EVENT DATE: 20161117
